FAERS Safety Report 7511273-0 (Version None)
Quarter: 2011Q2

REPORT INFORMATION
  Report Type: 
  Country: None (occurrence: None)
  Receive Date: 20110531
  Receipt Date: 20110429
  Transmission Date: 20111010
  Serious: Yes (Other)
  Sender: FDA-Public Use
  Company Number: US-BAYER-201033528NA

PATIENT
  Age: 21 Year
  Sex: Female

DRUGS (2)
  1. YAZ [Suspect]
     Indication: PRODUCT USED FOR UNKNOWN INDICATION
     Dosage: 3 UNK, UNK
     Route: 048
     Dates: start: 20070501, end: 20070701
  2. YASMIN [Suspect]
     Indication: PRODUCT USED FOR UNKNOWN INDICATION
     Dates: start: 20070501, end: 20070701

REACTIONS (3)
  - BILIARY DYSKINESIA [None]
  - CHOLECYSTECTOMY [None]
  - PAIN [None]
